FAERS Safety Report 19797234 (Version 1)
Quarter: 2021Q3

REPORT INFORMATION
  Report Type: Spontaneous
  Country: US (occurrence: US)
  Receive Date: 20210907
  Receipt Date: 20210907
  Transmission Date: 20211014
  Serious: Yes (Other)
  Sender: FDA-Public Use
  Company Number: US-HIKMA PHARMACEUTICALS USA INC.-US-H14001-21-03860

PATIENT
  Age: 72 Year
  Sex: Female

DRUGS (1)
  1. DOCETAXEL. [Suspect]
     Active Substance: DOCETAXEL
     Indication: LUNG ADENOCARCINOMA
     Dosage: UNKNOWN
     Route: 042

REACTIONS (5)
  - Rash erythematous [Recovering/Resolving]
  - Skin plaque [Recovering/Resolving]
  - Toxic skin eruption [Recovering/Resolving]
  - Dysaesthesia [Recovering/Resolving]
  - Injection site rash [Recovering/Resolving]
